FAERS Safety Report 6862756-8 (Version None)
Quarter: 2010Q2

REPORT INFORMATION
  Report Type: 
  Country: None (occurrence: None)
  Receive Date: 20100528
  Receipt Date: 20100418
  Transmission Date: 20101027
  Serious: No
  Sender: FDA-Public Use
  Company Number: 2010049347

PATIENT
  Age: 65 Year
  Sex: Female
  Weight: 81 kg

DRUGS (3)
  1. TOVIAZ [Suspect]
     Indication: HYPERTONIC BLADDER
     Dosage: 4 MG, 1X/DAY, ORAL
     Route: 048
     Dates: start: 20100401
  2. CARVEDILOL [Concomitant]
  3. BENICAR [Concomitant]

REACTIONS (6)
  - DIZZINESS [None]
  - DRY EYE [None]
  - DRY MOUTH [None]
  - GASTRIC DISORDER [None]
  - HEADACHE [None]
  - NAUSEA [None]
